FAERS Safety Report 9459445 (Version 2)
Quarter: 2013Q3

REPORT INFORMATION
  Report Type: Report from Study
  Country: FR (occurrence: FR)
  Receive Date: 20130815
  Receipt Date: 20130906
  Transmission Date: 20140515
  Serious: Yes (Hospitalization, Other)
  Sender: FDA-Public Use
  Company Number: PHHY2013FR087727

PATIENT
  Age: 86 Year
  Sex: Female

DRUGS (7)
  1. ACLASTA/ZOLEDRONATE [Suspect]
     Indication: OSTEOPOROSIS
     Dosage: 5 MG, UNK
     Route: 042
     Dates: start: 20120115
  2. MOPRAL [Concomitant]
     Dosage: UNK UKN, UNK
     Dates: start: 2008
  3. PARACETAMOL [Concomitant]
     Dosage: UNK UKN, UNK
     Dates: start: 2008
  4. OXYBUTIN [Concomitant]
     Dosage: UNK UKN, UNK
     Dates: start: 2008
  5. SIMVASTATIN [Concomitant]
     Dosage: UNK UKN, UNK
     Dates: start: 2008
  6. LAMALINE [Concomitant]
     Dosage: UNK UKN, UNK
     Dates: start: 2012, end: 201209
  7. LAMALINE [Concomitant]
     Dosage: UNK UKN, UNK
     Dates: start: 201303

REACTIONS (2)
  - Adenocarcinoma of colon [Recovering/Resolving]
  - Flank pain [Unknown]
